FAERS Safety Report 24869898 (Version 1)
Quarter: 2025Q1

REPORT INFORMATION
  Report Type: Spontaneous
  Country: CN (occurrence: CN)
  Receive Date: 20250121
  Receipt Date: 20250121
  Transmission Date: 20250408
  Serious: Yes (Hospitalization)
  Sender: EISAI
  Company Number: CN-Eisai-EC-2025-182419

PATIENT
  Age: 84 Year
  Sex: Female

DRUGS (2)
  1. LENVATINIB [Suspect]
     Active Substance: LENVATINIB
     Indication: Hepatic cancer
     Route: 048
     Dates: start: 20241125, end: 20241125
  2. KEYTRUDA [Suspect]
     Active Substance: PEMBROLIZUMAB
     Indication: Hepatic cancer
     Route: 041
     Dates: start: 20241125, end: 20241125

REACTIONS (3)
  - Rash pruritic [Recovered/Resolved]
  - Skin ulcer [Unknown]
  - Skin infection [Unknown]

NARRATIVE: CASE EVENT DATE: 20241215
